FAERS Safety Report 9412455 (Version 2)
Quarter: 2013Q3

REPORT INFORMATION
  Report Type: Spontaneous
  Country: FR (occurrence: FR)
  Receive Date: 20130722
  Receipt Date: 20130728
  Transmission Date: 20140515
  Serious: Yes (Other)
  Sender: FDA-Public Use
  Company Number: FR-US-EMD SERONO, INC.-7215941

PATIENT
  Age: 29 Year
  Sex: Female

DRUGS (2)
  1. PERGOTIME [Suspect]
     Indication: INFERTILITY
     Route: 048
     Dates: start: 20130520, end: 20130522
  2. PARLODEL [Suspect]
     Indication: HYPERPROLACTINAEMIA
     Route: 048
     Dates: start: 201206

REACTIONS (4)
  - Abdominal pain [Recovered/Resolved]
  - Pelvic pain [Recovered/Resolved]
  - Gastrointestinal motility disorder [Recovered/Resolved]
  - Faecaloma [Recovered/Resolved]
